FAERS Safety Report 9224462 (Version 1)
Quarter: 2013Q2

REPORT INFORMATION
  Report Type: Spontaneous
  Country: US (occurrence: None)
  Receive Date: 20130409
  Receipt Date: 20130409
  Transmission Date: 20140414
  Serious: No
  Sender: FDA-Public Use
  Company Number: None

PATIENT
  Sex: Female

DRUGS (1)
  1. COPAXONE 20MG TEVA [Suspect]
     Dosage: 6 DAYS 20 MG DAILY SQ
     Route: 058

REACTIONS (4)
  - Vision blurred [None]
  - Asthenopia [None]
  - Alopecia [None]
  - Fatigue [None]
